FAERS Safety Report 8632448 (Version 3)
Quarter: 2014Q4

REPORT INFORMATION
  Report Type: Spontaneous
  Country: US (occurrence: US)
  Receive Date: 20120625
  Receipt Date: 20141226
  Transmission Date: 20150529
  Serious: Yes (Life-Threatening, Hospitalization, Other)
  Sender: FDA-Public Use
  Company Number: US-BAYER-2012-061295

PATIENT
  Age: 41 Year
  Sex: Female
  Weight: 52 kg

DRUGS (7)
  1. MINOCYCLINE [Concomitant]
     Active Substance: MINOCYCLINE\MINOCYCLINE HYDROCHLORIDE
     Indication: ACNE
     Dosage: 100 MG, UNK
     Route: 048
     Dates: start: 20061101
  2. PROPOXYPHENE HYDROCHLORIDE W/PARACETAMOL [Concomitant]
     Active Substance: ACETAMINOPHEN\PROPOXYPHENE HYDROCHLORIDE
     Dosage: UNK
     Dates: start: 20061222
  3. CLARITIN-D 12 HOUR [Concomitant]
     Active Substance: LORATADINE\PSEUDOEPHEDRINE SULFATE
     Dosage: UNK, AS NEEDED
  4. IMITREX [Concomitant]
     Active Substance: SUMATRIPTAN\SUMATRIPTAN SUCCINATE
     Dosage: UNK, AS NEEDED
  5. ALBUTEROL. [Concomitant]
     Active Substance: ALBUTEROL
     Dosage: 90 MCG
     Dates: start: 20061122
  6. YASMIN [Suspect]
     Active Substance: DROSPIRENONE\ETHINYL ESTRADIOL
     Indication: ACNE
     Dosage: UNK
     Dates: start: 200608, end: 200611
  7. YAZ [Suspect]
     Active Substance: DROSPIRENONE\ETHINYL ESTRADIOL
     Indication: ACNE
     Dosage: UNK
     Dates: start: 200611, end: 200612

REACTIONS (10)
  - Cerebrovascular accident [Recovering/Resolving]
  - Anxiety [None]
  - Pain [None]
  - Pain [Recovering/Resolving]
  - Mental impairment [None]
  - Injury [Recovering/Resolving]
  - General physical health deterioration [Recovering/Resolving]
  - Emotional distress [None]
  - Anhedonia [None]
  - Product use issue [None]
